FAERS Safety Report 10689398 (Version 1)
Quarter: 2015Q1

REPORT INFORMATION
  Report Type: Other
  Country: DE (occurrence: DE)
  Receive Date: 20150105
  Receipt Date: 20150105
  Transmission Date: 20150720
  Serious: Yes (Other)
  Sender: FDA-Public Use
  Company Number: DE-SUN PHARMACEUTICAL INDUSTRIES LTD-2014SUN02998

PATIENT

DRUGS (1)
  1. VENLAFAXINE HYDROCHLORIDE 37.5 MG TABLET [Suspect]
     Active Substance: VENLAFAXINE HYDROCHLORIDE
     Indication: DEPRESSION
     Dosage: 75 MG, 1 IN 1 DAY
     Route: 064
     Dates: start: 20140107, end: 20141006

REACTIONS (3)
  - Foetal exposure during pregnancy [None]
  - Foetal exposure during pregnancy [Unknown]
  - Neonatal tachycardia [Recovered/Resolved]
